FAERS Safety Report 19449294 (Version 1)
Quarter: 2021Q2

REPORT INFORMATION
  Report Type: Spontaneous
  Country: IT (occurrence: IT)
  Receive Date: 20210622
  Receipt Date: 20210622
  Transmission Date: 20210717
  Serious: Yes (Other)
  Sender: FDA-Public Use
  Company Number: IT-SA-2021SA204475

PATIENT
  Age: 23 Year
  Sex: Female

DRUGS (2)
  1. LEMTRADA [Suspect]
     Active Substance: ALEMTUZUMAB
     Dosage: UNK
     Dates: start: 20200428, end: 20200430
  2. LEMTRADA [Suspect]
     Active Substance: ALEMTUZUMAB
     Indication: MULTIPLE SCLEROSIS
     Dosage: UNK
     Dates: start: 20190304, end: 20190308

REACTIONS (8)
  - COVID-19 [Recovering/Resolving]
  - Cough [Recovering/Resolving]
  - Evans syndrome [Recovering/Resolving]
  - Haemoptysis [Recovering/Resolving]
  - Rhinitis [Recovering/Resolving]
  - Haemolytic anaemia [Recovering/Resolving]
  - Thrombocytopenia [Recovering/Resolving]
  - Pyrexia [Recovering/Resolving]

NARRATIVE: CASE EVENT DATE: 2021
